FAERS Safety Report 5452284-9 (Version None)
Quarter: 2007Q3

REPORT INFORMATION
  Report Type: 
  Country: None (occurrence: None)
  Receive Date: 20070912
  Receipt Date: 20070912
  Transmission Date: 20080115
  Serious: No
  Sender: FDA-Public Use
  Company Number: None

PATIENT
  Sex: Male
  Weight: 80.7403 kg

DRUGS (2)
  1. GLYCOLAX -IND DOSE PACKETS- 17 GRAMS KREMERS URBAN, LLC [Suspect]
     Indication: DIVERTICULITIS
     Dosage: 17 GRAMS TWICE DAILY PO
     Route: 048
     Dates: start: 20070825, end: 20070911
  2. GLYCOLAX -IND DOSE PACKETS- 17 GRAMS KREMERS URBAN, LLC [Suspect]
     Indication: PROPHYLAXIS
     Dosage: 17 GRAMS TWICE DAILY PO
     Route: 048
     Dates: start: 20070825, end: 20070911

REACTIONS (1)
  - PHARMACEUTICAL PRODUCT COMPLAINT [None]
